FAERS Safety Report 14630791 (Version 1)
Quarter: 2018Q1

REPORT INFORMATION
  Report Type: Spontaneous
  Country: US (occurrence: US)
  Receive Date: 20180313
  Receipt Date: 20180313
  Transmission Date: 20180509
  Serious: Yes (Other)
  Sender: FDA-Public Use
  Company Number: US-GLAXOSMITHKLINE-US2018041608

PATIENT
  Age: 60 Year
  Sex: Male

DRUGS (1)
  1. PARACETAMOL + ASPIRIN + CAFFEINE [Suspect]
     Active Substance: ACETAMINOPHEN\ASPIRIN\CAFFEINE
     Indication: HEADACHE
     Dosage: 2-3 HEADACHE POWDERS
     Route: 065

REACTIONS (4)
  - Dizziness postural [Unknown]
  - Duodenal ulcer [Unknown]
  - Drug abuse [Unknown]
  - Gastrointestinal haemorrhage [Unknown]
